FAERS Safety Report 23853314 (Version 1)
Quarter: 2024Q2

REPORT INFORMATION
  Report Type: Spontaneous
  Country: US (occurrence: US)
  Receive Date: 20240514
  Receipt Date: 20240514
  Transmission Date: 20240716
  Serious: Yes (Hospitalization)
  Sender: FDA-Public Use
  Company Number: US-MYLANLABS-2024M1043215

PATIENT
  Age: 60 Year
  Sex: Male

DRUGS (8)
  1. METHADONE [Suspect]
     Active Substance: METHADONE HYDROCHLORIDE
     Indication: Cancer pain
     Dosage: 90 MILLIGRAM, TID
     Route: 065
  2. METHADONE [Suspect]
     Active Substance: METHADONE HYDROCHLORIDE
     Indication: Fracture pain
     Dosage: UNK (DOSE DECREASED)
     Route: 065
  3. FENTANYL [Suspect]
     Active Substance: FENTANYL\FENTANYL CITRATE
     Indication: Cancer pain
     Dosage: 800 MILLIGRAM; MORPHINE EQUIVALENT DAILY DOSE (MEDD) OF 800MG
     Route: 062
  4. FENTANYL [Suspect]
     Active Substance: FENTANYL\FENTANYL CITRATE
     Indication: Fracture pain
     Dosage: UNK (DOSE REDUCED)
     Route: 062
  5. HYDROMORPHONE [Suspect]
     Active Substance: HYDROMORPHONE
     Indication: Cancer pain
     Dosage: 1152 MILLIGRAM, IMMEDIATE RELEASE 1152MG MORPHINE EQUIVALENT DOSE
     Route: 065
  6. HYDROMORPHONE [Suspect]
     Active Substance: HYDROMORPHONE
     Indication: Fracture pain
     Dosage: UNK
     Route: 065
  7. KETAMINE [Suspect]
     Active Substance: KETAMINE
     Indication: Cancer pain
     Dosage: UNK
     Route: 048
  8. KETAMINE [Suspect]
     Active Substance: KETAMINE
     Indication: Fracture pain

REACTIONS (1)
  - Drug ineffective [Unknown]
